FAERS Safety Report 14364361 (Version 1)
Quarter: 2018Q1

REPORT INFORMATION
  Report Type: Spontaneous
  Country: US (occurrence: US)
  Receive Date: 20180106
  Receipt Date: 20180106
  Transmission Date: 20180509
  Serious: No
  Sender: FDA-Public Use
  Company Number: None

PATIENT
  Age: 71 Year
  Sex: Female

DRUGS (1)
  1. COTELLIC [Suspect]
     Active Substance: COBIMETINIB
     Indication: MALIGNANT MELANOMA
     Dosage: 2X20MG=40MG
     Route: 048
     Dates: start: 20171125

REACTIONS (4)
  - Chills [None]
  - Rash [None]
  - Gastric pH decreased [None]
  - Acne [None]

NARRATIVE: CASE EVENT DATE: 20171215
